FAERS Safety Report 5922782-X (Version None)
Quarter: 2008Q4

REPORT INFORMATION
  Report Type: 
  Country: None (occurrence: None)
  Receive Date: 20081017
  Receipt Date: 20081015
  Transmission Date: 20090506
  Serious: Yes (Hospitalization)
  Sender: FDA-Public Use
  Company Number: US-ASTRAZENECA-2008UW22701

PATIENT
  Age: 687 Month
  Sex: Female
  Weight: 63.5 kg

DRUGS (7)
  1. CRESTOR [Suspect]
     Indication: BLOOD CHOLESTEROL INCREASED
     Route: 048
     Dates: start: 20080801, end: 20080801
  2. PRILOSEC [Concomitant]
     Route: 048
  3. PULMICORT-100 [Concomitant]
     Route: 055
  4. PULMICORT-100 [Concomitant]
     Route: 055
  5. VERAPAMIL [Concomitant]
  6. XOPENEX [Concomitant]
  7. SPIRIVA [Concomitant]

REACTIONS (2)
  - EMPHYSEMA [None]
  - MUSCLE SPASMS [None]
